FAERS Safety Report 25300918 (Version 1)
Quarter: 2025Q2

REPORT INFORMATION
  Report Type: Spontaneous
  Country: US (occurrence: US)
  Receive Date: 20250512
  Receipt Date: 20250512
  Transmission Date: 20250717
  Serious: No
  Sender: VIIV
  Company Number: US-VIIV HEALTHCARE-US2025057048

PATIENT
  Age: 47 Year
  Sex: Male

DRUGS (1)
  1. TIVICAY [Suspect]
     Active Substance: DOLUTEGRAVIR SODIUM
     Indication: Product used for unknown indication
     Dates: start: 202002

REACTIONS (1)
  - Product dose omission issue [Unknown]

NARRATIVE: CASE EVENT DATE: 20250508
